FAERS Safety Report 7380683-7 (Version None)
Quarter: 2011Q1

REPORT INFORMATION
  Report Type: 
  Country: None (occurrence: None)
  Receive Date: 20110329
  Receipt Date: 20110321
  Transmission Date: 20110831
  Serious: No
  Sender: FDA-Public Use
  Company Number: US-AMGEN-USASP2011012180

PATIENT
  Age: 52 Year
  Sex: Female

DRUGS (2)
  1. ENBREL [Suspect]
     Indication: RHEUMATOID ARTHRITIS
     Dosage: 50 MG, QWK
     Dates: start: 20041215
  2. NORTRIPTYLINE [Concomitant]
     Indication: DEPRESSION

REACTIONS (3)
  - RHEUMATOID ARTHRITIS [None]
  - NASOPHARYNGITIS [None]
  - HERPES ZOSTER [None]
